FAERS Safety Report 4637808-3 (Version None)
Quarter: 2005Q2

REPORT INFORMATION
  Report Type: 
  Country: None (occurrence: None)
  Receive Date: 20050325
  Receipt Date: 20041130
  Transmission Date: 20051028
  Serious: No
  Sender: FDA-Public Use
  Company Number: USA041284895

PATIENT
  Age: 82 Year
  Sex: Female

DRUGS (9)
  1. FORTEO [Suspect]
     Indication: OSTEOPOROSIS
     Dates: start: 20030905
  2. DIOVAN [Concomitant]
  3. SYNTHROID [Concomitant]
  4. PLAVIX [Concomitant]
  5. PREMARIN [Concomitant]
  6. CALCIUM GLUCONATE [Concomitant]
  7. VITAMIN D [Concomitant]
  8. MULTI-VITAMIN [Concomitant]
  9. METOPROLOL SUCCINATE [Concomitant]

REACTIONS (1)
  - FALL [None]
